FAERS Safety Report 8221017 (Version 5)
Quarter: 2013Q1

REPORT INFORMATION
  Report Type: Spontaneous
  Country: US (occurrence: US)
  Receive Date: 20111102
  Receipt Date: 20130117
  Transmission Date: 20140127
  Serious: Yes (Other)
  Sender: FDA-Public Use
  Company Number: US-ELI_LILLY_AND_COMPANY-US201110005927

PATIENT
  Sex: Male

DRUGS (16)
  1. FORTEO [Suspect]
     Indication: OSTEOPOROSIS
     Dosage: 20 UG, QD
     Route: 065
     Dates: start: 201109
  2. FORTEO [Suspect]
     Dosage: 20 UG, QD
  3. FORTEO [Suspect]
     Dosage: 20 UG, QD
  4. FORTEO [Suspect]
     Dosage: 20 UG, QD
  5. FORTEO [Suspect]
     Dosage: 20 UG, QD
  6. REVLIMID [Concomitant]
     Dosage: 10 MG, UNK
  7. GABAPENTIN [Concomitant]
     Dosage: UNK
  8. CALCIUM [Concomitant]
     Dosage: 600 MG, UNK
  9. TIZANIDINE [Concomitant]
     Indication: MUSCLE SPASMS
     Dosage: UNK
  10. PENICILLIN V-K [Concomitant]
     Indication: TOOTH DISORDER
     Dosage: UNK, BID
  11. TRAMADOL [Concomitant]
     Dosage: UNK
  12. VITAMIN B2 [Concomitant]
     Dosage: UNK
  13. AMOXICILLIN [Concomitant]
     Dosage: UNK, PRN
  14. FISH OIL [Concomitant]
     Dosage: UNK
  15. ASPIRIN [Concomitant]
     Dosage: 81 MG, UNK
  16. ALFUZOSINE HCL [Concomitant]
     Dosage: UNK

REACTIONS (10)
  - Jaw disorder [Unknown]
  - Osteonecrosis [Unknown]
  - Abdominal pain upper [Unknown]
  - Urine abnormality [Unknown]
  - Blood calcium increased [Unknown]
  - Tooth infection [Unknown]
  - Back disorder [Unknown]
  - Bone pain [Unknown]
  - Bone disorder [Unknown]
  - Bronchitis [Unknown]
